FAERS Safety Report 4995010-X (Version None)
Quarter: 2006Q2

REPORT INFORMATION
  Report Type: 
  Country: None (occurrence: None)
  Receive Date: 20060503
  Receipt Date: 20060414
  Transmission Date: 20061013
  Serious: No
  Sender: FDA-Public Use
  Company Number: 007192

PATIENT
  Age: 55 Year
  Sex: Female
  Weight: 62.6 kg

DRUGS (6)
  1. SEASONALE [Suspect]
     Indication: MENSTRUATION IRREGULAR
     Dosage: 1 TABLET, QD, ORAL
     Route: 048
     Dates: start: 20051101
  2. TOPROL-XL [Concomitant]
  3. ASCORBIC ACID [Concomitant]
  4. VITAMIN E [Concomitant]
  5. IRON (IRON) [Concomitant]
  6. CALCIUM (CALCIUM) [Concomitant]

REACTIONS (2)
  - CERVICAL POLYP [None]
  - VAGINAL HAEMORRHAGE [None]
